FAERS Safety Report 18638651 (Version 1)
Quarter: 2020Q4

REPORT INFORMATION
  Report Type: Spontaneous
  Country: US (occurrence: US)
  Receive Date: 20201218
  Receipt Date: 20201218
  Transmission Date: 20210114
  Serious: No
  Sender: FDA-Public Use
  Company Number: US-REGENERON PHARMACEUTICALS, INC.-2020-90054

PATIENT

DRUGS (3)
  1. EYLEA [Suspect]
     Active Substance: AFLIBERCEPT
     Indication: EYE HAEMORRHAGE
     Dosage: 2 MG, IN EACH EYE ONCE A YEAR
     Route: 031
     Dates: start: 20201001, end: 20201001
  2. EYLEA [Suspect]
     Active Substance: AFLIBERCEPT
     Indication: BLINDNESS
     Dosage: 2 MG, IN EACH EYE ONCE A YEAR
     Route: 031
     Dates: start: 20200901, end: 20200901
  3. EYLEA [Suspect]
     Active Substance: AFLIBERCEPT
     Indication: RETINAL DETACHMENT
     Dosage: 2 MG, IN EACH EYE ONCE A YEAR
     Route: 031
     Dates: start: 2016

REACTIONS (1)
  - Off label use [Unknown]
